FAERS Safety Report 7284478-4 (Version None)
Quarter: 2011Q1

REPORT INFORMATION
  Report Type: 
  Country: None (occurrence: None)
  Receive Date: 20110209
  Receipt Date: 20110203
  Transmission Date: 20110831
  Serious: Yes (Other)
  Sender: FDA-Public Use
  Company Number: US-AMGEN-USASP2011006878

PATIENT
  Age: 71 Year
  Sex: Male

DRUGS (1)
  1. ENBREL [Suspect]
     Indication: PSORIASIS
     Dosage: 50 MG, QWK
     Dates: start: 20050101, end: 20101201

REACTIONS (14)
  - WHEEZING [None]
  - MACULOPATHY [None]
  - FLUID RETENTION [None]
  - POOR QUALITY SLEEP [None]
  - LOWER RESPIRATORY TRACT INFECTION [None]
  - EYE HAEMORRHAGE [None]
  - FATIGUE [None]
  - SOMNOLENCE [None]
  - DYSSOMNIA [None]
  - SLEEP APNOEA SYNDROME [None]
  - PSORIASIS [None]
  - PULMONARY CONGESTION [None]
  - GLAUCOMA [None]
  - CARDIOMYOPATHY [None]
